FAERS Safety Report 9778831 (Version 2)
Quarter: 2013Q4

REPORT INFORMATION
  Report Type: Spontaneous
  Country: IT (occurrence: IT)
  Receive Date: 20131223
  Receipt Date: 20131223
  Transmission Date: 20140711
  Serious: Yes (Hospitalization)
  Sender: FDA-Public Use
  Company Number: IT-TEVA-383475USA

PATIENT
  Age: 61 Year
  Sex: Female

DRUGS (5)
  1. BENDAMUSTINE [Suspect]
     Indication: CHEMOTHERAPY
     Route: 042
     Dates: start: 20120301, end: 20121013
  2. SOLOSA [Concomitant]
  3. DELTACORTENE [Concomitant]
     Route: 048
  4. METFORMIN HYDROCHLORIDE [Concomitant]
     Route: 048
  5. HUMAN MONSULIN [Concomitant]

REACTIONS (2)
  - Pancytopenia [Not Recovered/Not Resolved]
  - Pyrexia [Not Recovered/Not Resolved]
